FAERS Safety Report 4613839-4 (Version None)
Quarter: 2005Q1

REPORT INFORMATION
  Report Type: 
  Country: None (occurrence: None)
  Receive Date: 20050321
  Receipt Date: 20050311
  Transmission Date: 20050727
  Serious: Yes (Death, Hospitalization)
  Sender: FDA-Public Use
  Company Number: FI-BRISTOL-MYERS SQUIBB COMPANY-12901179

PATIENT
  Age: 81 Year
  Sex: Female

DRUGS (14)
  1. TREXAN (ORION) [Suspect]
     Indication: RHEUMATOID ARTHRITIS
     Dosage: TOTAL DOSE:  7857 MG
     Dates: start: 20031015, end: 20050224
  2. NORVASC [Concomitant]
  3. FURESIS [Concomitant]
  4. SOMAC [Concomitant]
  5. METOPROLOL SUCCINATE [Concomitant]
  6. ACETAMINOPHEN [Concomitant]
  7. NITROSID [Concomitant]
  8. PRIMASPAN [Concomitant]
  9. URETREN [Concomitant]
  10. IMOVANE [Concomitant]
  11. MEPROBAMATE [Concomitant]
  12. CELEBRA [Concomitant]
  13. PANOCOD [Concomitant]
  14. ISOSORBIDE DINITRATE [Concomitant]

REACTIONS (1)
  - PANCYTOPENIA [None]
